FAERS Safety Report 6665893-6 (Version None)
Quarter: 2010Q2

REPORT INFORMATION
  Report Type: 
  Country: None (occurrence: None)
  Receive Date: 20100402
  Receipt Date: 20100326
  Transmission Date: 20101027
  Serious: Yes (Death, Hospitalization, Other)
  Sender: FDA-Public Use
  Company Number: GB-ROCHE-693890

PATIENT
  Age: 52 Year
  Sex: Male

DRUGS (2)
  1. XELODA [Suspect]
     Indication: COLORECTAL CANCER
     Route: 065
     Dates: end: 20100226
  2. OXALIPLATIN [Concomitant]
     Indication: COLORECTAL CANCER

REACTIONS (4)
  - DEATH [None]
  - DIARRHOEA [None]
  - DIHYDROPYRIMIDINE DEHYDROGENASE DEFICIENCY [None]
  - NEUTROPHIL COUNT DECREASED [None]
